FAERS Safety Report 5860896-3 (Version None)
Quarter: 2008Q3

REPORT INFORMATION
  Report Type: 
  Country: None (occurrence: None)
  Receive Date: 20080827
  Receipt Date: 20071218
  Transmission Date: 20090109
  Serious: No
  Sender: FDA-Public Use
  Company Number: US-ABBOTT-08P-163-0431757-00

PATIENT
  Sex: Male

DRUGS (2)
  1. NIASPAN [Suspect]
     Indication: BLOOD CHOLESTEROL ABNORMAL
     Route: 048
     Dates: start: 20051201
  2. NIASPAN [Suspect]
     Route: 048
     Dates: start: 20031201, end: 20051201

REACTIONS (3)
  - DRUG INEFFECTIVE [None]
  - HIGH DENSITY LIPOPROTEIN [None]
  - LOW DENSITY LIPOPROTEIN [None]
